FAERS Safety Report 19733821 (Version 2)
Quarter: 2021Q3

REPORT INFORMATION
  Report Type: Report from Study
  Country: US (occurrence: US)
  Receive Date: 20210823
  Receipt Date: 20210824
  Transmission Date: 20211014
  Serious: Yes (Hospitalization)
  Sender: FDA-Public Use
  Company Number: US-UCBSA-2021038537

PATIENT
  Age: 50 Year
  Sex: Female

DRUGS (1)
  1. ROTIGOTINE [Suspect]
     Active Substance: ROTIGOTINE
     Indication: RESTLESS LEGS SYNDROME
     Dosage: 6 MILLIGRAM, ONCE DAILY (QD)

REACTIONS (4)
  - Cardiac disorder [Recovered/Resolved]
  - Off label use [Unknown]
  - Product quality issue [Unknown]
  - Overdose [Unknown]

NARRATIVE: CASE EVENT DATE: 20210705
